FAERS Safety Report 24148694 (Version 3)
Quarter: 2024Q4

REPORT INFORMATION
  Report Type: Spontaneous
  Country: SE (occurrence: SE)
  Receive Date: 20240729
  Receipt Date: 20241002
  Transmission Date: 20250115
  Serious: No
  Sender: PFIZER
  Company Number: SE-PFIZER INC-202400217255

PATIENT
  Sex: Male

DRUGS (1)
  1. RETACRIT [Suspect]
     Active Substance: EPOETIN ALFA-EPBX
     Dosage: UNK

REACTIONS (1)
  - Syringe issue [Unknown]
